FAERS Safety Report 26045573 (Version 1)
Quarter: 2025Q4

REPORT INFORMATION
  Report Type: Spontaneous
  Country: US (occurrence: US)
  Receive Date: 20251114
  Receipt Date: 20251114
  Transmission Date: 20260117
  Serious: No
  Sender: ABBVIE
  Company Number: US-ABBVIE-6548520

PATIENT
  Sex: Female

DRUGS (1)
  1. BOTOX [Suspect]
     Active Substance: ONABOTULINUMTOXINA
     Indication: Blepharospasm
     Dosage: TIME INTERVAL: AS NECESSARY: THERAPEUTIC
     Route: 065
     Dates: start: 20251031, end: 20251031

REACTIONS (1)
  - Eye disorder [Unknown]
